FAERS Safety Report 9800453 (Version 1)
Quarter: 2014Q1

REPORT INFORMATION
  Report Type: Spontaneous
  Country: US (occurrence: US)
  Receive Date: 20140107
  Receipt Date: 20140107
  Transmission Date: 20141002
  Serious: No
  Sender: FDA-Public Use
  Company Number: US-009507513-1312USA008133

PATIENT
  Age: 53 Year
  Sex: Male

DRUGS (4)
  1. PEGINTRON [Suspect]
     Indication: HEPATITIS C
     Dosage: UNK, QW REDIPEN
     Dates: start: 201306
  2. PEGINTRON [Suspect]
     Indication: HEPATIC CIRRHOSIS
  3. BENADRYL [Concomitant]
  4. IMODIUM [Concomitant]

REACTIONS (8)
  - Hypotension [Unknown]
  - Red blood cell count decreased [Unknown]
  - Rash [Recovered/Resolved]
  - Dyspnoea [Not Recovered/Not Resolved]
  - Dizziness [Not Recovered/Not Resolved]
  - Dizziness [Not Recovered/Not Resolved]
  - Anaemia [Unknown]
  - White blood cell count decreased [Unknown]
